FAERS Safety Report 8587352-6 (Version None)
Quarter: 2012Q3

REPORT INFORMATION
  Report Type: 
  Country: None (occurrence: None)
  Receive Date: 20120810
  Receipt Date: 20120416
  Transmission Date: 20120928
  Serious: No
  Sender: FDA-Public Use
  Company Number: US-ASTRAZENECA-2012SE25021

PATIENT
  Age: 56 Year
  Sex: Female
  Weight: 72.6 kg

DRUGS (2)
  1. AMLODIPINE [Concomitant]
     Indication: BLOOD PRESSURE
  2. ARIMIDEX [Suspect]
     Indication: BREAST CANCER
     Route: 048
     Dates: start: 20110301

REACTIONS (5)
  - NEUROPATHY PERIPHERAL [None]
  - BONE PAIN [None]
  - JOINT STIFFNESS [None]
  - FEELING HOT [None]
  - MUSCULOSKELETAL STIFFNESS [None]
